FAERS Safety Report 24713157 (Version 1)
Quarter: 2024Q4

REPORT INFORMATION
  Report Type: Spontaneous
  Country: US (occurrence: None)
  Receive Date: 20241209
  Receipt Date: 20241209
  Transmission Date: 20250115
  Serious: Yes (Disabling)
  Sender: Public
  Company Number: None

PATIENT
  Age: 39 Year
  Sex: Male
  Weight: 78.75 kg

DRUGS (1)
  1. REMICADE [Suspect]
     Active Substance: INFLIXIMAB
     Indication: Colitis ulcerative
     Dosage: OTHER ROUTE : INFUSIONS 6 TIMES A YEAR;?
     Route: 050

REACTIONS (9)
  - Fatigue [None]
  - Syncope [None]
  - Gait disturbance [None]
  - Brain fog [None]
  - Cardiac disorder [None]
  - Dyspnoea [None]
  - Sensory loss [None]
  - Visual impairment [None]
  - Pain in extremity [None]

NARRATIVE: CASE EVENT DATE: 20241209
